FAERS Safety Report 25908793 (Version 1)
Quarter: 2025Q4

REPORT INFORMATION
  Report Type: Spontaneous
  Country: RS (occurrence: RS)
  Receive Date: 20251011
  Receipt Date: 20251011
  Transmission Date: 20260117
  Serious: Yes (Death, Hospitalization, Other)
  Sender: CASPER PHARMA
  Company Number: RS-CASPERPHARMA-RS-2025RISLIT00490

PATIENT
  Age: 53 Year
  Sex: Female

DRUGS (1)
  1. ALLOPURINOL [Suspect]
     Active Substance: ALLOPURINOL
     Indication: Product used for unknown indication
     Route: 065

REACTIONS (10)
  - Renal failure [Fatal]
  - Sepsis [Fatal]
  - Toxic epidermal necrolysis [Fatal]
  - Renal impairment [Fatal]
  - Renal injury [Fatal]
  - Erythema [Fatal]
  - Blister [Fatal]
  - Skin erosion [Fatal]
  - Gastric mucosal lesion [Fatal]
  - Skin lesion [Fatal]
